FAERS Safety Report 8827879 (Version 2)
Quarter: 2019Q3

REPORT INFORMATION
  Report Type: Spontaneous
  Country: DE (occurrence: DE)
  Receive Date: 20121005
  Receipt Date: 20190722
  Transmission Date: 20191005
  Serious: Yes (Death, Other)
  Sender: FDA-Public Use
  Company Number: DE-ALEXION-A201201787

PATIENT

DRUGS (1)
  1. ECULIZUMAB [Suspect]
     Active Substance: ECULIZUMAB
     Indication: HAEMOLYTIC URAEMIC SYNDROME
     Route: 065

REACTIONS (5)
  - Off label use [Unknown]
  - Death [Fatal]
  - Dialysis [Unknown]
  - Seizure [Unknown]
  - Mechanical ventilation [Unknown]
